FAERS Safety Report 8764997 (Version 2)
Quarter: 2012Q4

REPORT INFORMATION
  Report Type: 
  Country: US (occurrence: US)
  Receive Date: 20120903
  Receipt Date: 20120910
  Transmission Date: 20130627
  Serious: Yes (Hospitalization, Other)
  Sender: FDA-Public Use
  Company Number: US-009507513-1208USA011167

PATIENT

DRUGS (2)
  1. HEXADROL TABLETS [Suspect]
     Indication: LYMPHADENOPATHY
     Dosage: UNK
     Route: 048
  2. PIPERACILLIN SODIUM (+) TAZOBACTAM SODIUM [Concomitant]
     Indication: LYMPHADENITIS

REACTIONS (2)
  - Adverse event [Recovered/Resolved]
  - Drug administration error [Unknown]
